FAERS Safety Report 24309791 (Version 1)
Quarter: 2024Q3

REPORT INFORMATION
  Report Type: Spontaneous
  Country: US (occurrence: None)
  Receive Date: 20240912
  Receipt Date: 20240912
  Transmission Date: 20241017
  Serious: Yes (Hospitalization)
  Sender: MDD OPERATIONS
  Company Number: US-MDD US Operations-MDD202406-002104

PATIENT
  Age: 76 Year
  Sex: Female

DRUGS (6)
  1. APOKYN [Suspect]
     Active Substance: APOMORPHINE HYDROCHLORIDE
     Indication: Parkinson^s disease
     Dates: start: 20240605
  2. APOKYN [Suspect]
     Active Substance: APOMORPHINE HYDROCHLORIDE
     Dates: start: 202406
  3. APOKYN [Suspect]
     Active Substance: APOMORPHINE HYDROCHLORIDE
     Dosage: /0-2 TIMES A DAY
     Dates: start: 20240605
  4. APOKYN [Suspect]
     Active Substance: APOMORPHINE HYDROCHLORIDE
     Dosage: 0.1-0.3ML
     Route: 058
     Dates: start: 20240607
  5. APOKYN [Suspect]
     Active Substance: APOMORPHINE HYDROCHLORIDE
     Dosage: NOT PROVIDED
     Route: 058
     Dates: start: 202405
  6. PREDNISONE [Concomitant]
     Active Substance: PREDNISONE
     Dosage: NOT PROVIDED

REACTIONS (11)
  - Seizure [Unknown]
  - Seizure [Unknown]
  - Dysphagia [Unknown]
  - Nausea [Recovering/Resolving]
  - Headache [Recovering/Resolving]
  - Hallucination, auditory [Recovered/Resolved]
  - Compulsive shopping [Recovered/Resolved]
  - Hallucination, visual [Unknown]
  - Insomnia [Unknown]
  - Insomnia [Recovered/Resolved]
  - Fall [Unknown]

NARRATIVE: CASE EVENT DATE: 20240601
